FAERS Safety Report 6372994-9 (Version None)
Quarter: 2009Q3

REPORT INFORMATION
  Report Type: 
  Country: None (occurrence: None)
  Receive Date: 20090924
  Receipt Date: 20081229
  Transmission Date: 20100115
  Serious: No
  Sender: FDA-Public Use
  Company Number: US-ASTRAZENECA-2008UW28809

PATIENT
  Age: 61 Year
  Sex: Female
  Weight: 59.9 kg

DRUGS (5)
  1. SEROQUEL [Suspect]
     Indication: TACHYPHRENIA
     Route: 048
     Dates: start: 20060629
  2. SEROQUEL [Suspect]
     Indication: MOOD SWINGS
     Route: 048
     Dates: start: 20060629
  3. SEROQUEL [Suspect]
     Indication: BIPOLAR DISORDER
     Route: 048
     Dates: start: 20060629
  4. LITHIUM [Concomitant]
  5. KLONOPIN [Concomitant]

REACTIONS (5)
  - DIARRHOEA [None]
  - NAUSEA [None]
  - RETCHING [None]
  - TACHYPHRENIA [None]
  - TREMOR [None]
